FAERS Safety Report 9992832 (Version 1)
Quarter: 2014Q1

REPORT INFORMATION
  Report Type: Report from Study
  Country: US (occurrence: US)
  Receive Date: 20140310
  Receipt Date: 20140310
  Transmission Date: 20141002
  Serious: No
  Sender: FDA-Public Use
  Company Number: US-ABBVIE-13P-163-1108926-00

PATIENT
  Age: 49 Year
  Sex: Female
  Weight: 84.9 kg

DRUGS (3)
  1. LUPRON DEPOT [Suspect]
     Indication: UTERINE LEIOMYOMA
     Dates: start: 20120228
  2. AZOR [Concomitant]
     Indication: HYPERTENSION
  3. ALLEGRA OVER THE COUNTER [Concomitant]
     Indication: HYPERSENSITIVITY

REACTIONS (4)
  - Sinusitis [Not Recovered/Not Resolved]
  - Rhinorrhoea [Not Recovered/Not Resolved]
  - Middle ear effusion [Not Recovered/Not Resolved]
  - Musculoskeletal discomfort [Unknown]
